FAERS Safety Report 5636988-0 (Version None)
Quarter: 2008Q1

REPORT INFORMATION
  Report Type: 
  Country: None (occurrence: None)
  Receive Date: 20080225
  Receipt Date: 20070328
  Transmission Date: 20080703
  Serious: No
  Sender: FDA-Public Use
  Company Number: US-BRISTOL-MYERS SQUIBB COMPANY-13729074

PATIENT
  Age: 61 Year
  Sex: Female
  Weight: 109 kg

DRUGS (6)
  1. GLUCOPHAGE [Suspect]
  2. LOTREL [Concomitant]
  3. ACTOS [Concomitant]
  4. LOPRESSOR [Concomitant]
  5. HYDROCHLOROTHIAZIDE [Concomitant]
  6. GLYBURIDE [Concomitant]

REACTIONS (3)
  - DIPLOPIA [None]
  - DYSARTHRIA [None]
  - MUSCULAR WEAKNESS [None]
